FAERS Safety Report 8845418 (Version 1)
Quarter: 2012Q4

REPORT INFORMATION
  Report Type: 
  Country: US (occurrence: US)
  Receive Date: 20121017
  Receipt Date: 20121017
  Transmission Date: 20130627
  Serious: No
  Sender: FDA-Public Use
  Company Number: US-ASTRAZENECA-2012SE77575

PATIENT
  Age: 76 Year
  Sex: Female
  Weight: 59 kg

DRUGS (5)
  1. ARIMIDEX [Suspect]
     Indication: BREAST CANCER
     Route: 048
     Dates: start: 2003
  2. LISINOPRIL [Concomitant]
     Indication: BLOOD PRESSURE ABNORMAL
  3. AMLODIPINE [Concomitant]
     Indication: BLOOD PRESSURE ABNORMAL
  4. VITAMIN B-12 [Concomitant]
  5. PROBIOTIC [Concomitant]

REACTIONS (5)
  - Gastritis [Unknown]
  - Lumbar spinal stenosis [Unknown]
  - Rheumatoid arthritis [Unknown]
  - Alopecia [Unknown]
  - Hot flush [Unknown]
